FAERS Safety Report 9784767 (Version 4)
Quarter: 2014Q1

REPORT INFORMATION
  Report Type: Spontaneous
  Country: IE (occurrence: IE)
  Receive Date: 20131227
  Receipt Date: 20140220
  Transmission Date: 20141002
  Serious: Yes (Death, Other)
  Sender: FDA-Public Use
  Company Number: IE-AMGEN-IRLSP2013090117

PATIENT
  Age: 85 Year
  Sex: Female
  Weight: 75.75 kg

DRUGS (7)
  1. PROLIA [Suspect]
     Indication: OSTEOPOROSIS
     Dosage: 60 MG, Q6MO
     Route: 058
     Dates: start: 20130708
  2. PROLIA [Suspect]
     Indication: OSTEOARTHRITIS
  3. METOCARD [Concomitant]
     Dosage: 100 MG, QD
     Route: 048
  4. LEXAPRO [Concomitant]
     Dosage: 5 MG, QD
     Route: 048
  5. DELTACORTRIL                       /00016201/ [Concomitant]
     Dosage: 5 MG, QD
     Route: 048
  6. FUROSEMIDE [Concomitant]
     Dosage: 40 MG, QD
     Route: 048
  7. COVERSYL                           /00790702/ [Concomitant]
     Dosage: 5 MG, QD
     Route: 048

REACTIONS (6)
  - Cardiac arrest [Fatal]
  - Vomiting [Unknown]
  - Dyspnoea [Unknown]
  - Unresponsive to stimuli [Unknown]
  - Renal impairment [Fatal]
  - Polymyalgia rheumatica [Fatal]
